FAERS Safety Report 6553521-X (Version None)
Quarter: 2010Q1

REPORT INFORMATION
  Report Type: 
  Country: None (occurrence: None)
  Receive Date: 20100127
  Receipt Date: 20100120
  Transmission Date: 20100710
  Serious: Yes (Hospitalization)
  Sender: FDA-Public Use
  Company Number: KR-ROCHE-678326

PATIENT
  Sex: Male
  Weight: 70 kg

DRUGS (11)
  1. MYCOPHENOLATE MOFETIL [Suspect]
     Route: 048
     Dates: start: 20090205
  2. MYCOPHENOLATE MOFETIL [Suspect]
     Route: 048
     Dates: end: 20091219
  3. CP-690550 [Suspect]
     Indication: KIDNEY TRANSPLANT REJECTION
     Route: 048
     Dates: start: 20090205
  4. CP-690550 [Suspect]
     Dosage: LOWERED DOSAGE
     Route: 048
  5. AMLODIPINE [Concomitant]
     Indication: HYPERTENSION
     Dates: start: 20090207
  6. DIOVAN [Concomitant]
     Indication: HYPERTENSION
     Dates: start: 20090208
  7. PITAVASTATIN CALCIUM [Concomitant]
     Dates: start: 20090608
  8. TENORMIN [Concomitant]
     Indication: HYPERTENSION
     Dates: start: 20090214
  9. SEPTRIN [Concomitant]
     Indication: INFECTION PROPHYLAXIS
     Dates: start: 20090708
  10. PREDNISOLONE [Concomitant]
     Indication: IMMUNOSUPPRESSION
     Dates: start: 20090208
  11. PREDNISOLONE [Concomitant]
     Dosage: DOSAGE REDUCED

REACTIONS (1)
  - HODGKIN'S DISEASE NODULAR SCLEROSIS STAGE UNSPECIFIED [None]
